FAERS Safety Report 20680491 (Version 1)
Quarter: 2022Q2

REPORT INFORMATION
  Report Type: Other
  Country: DE (occurrence: None)
  Receive Date: 20220406
  Receipt Date: 20220406
  Transmission Date: 20220720
  Serious: Yes (Other)
  Sender: FDA-Public Use
  Company Number: DE-ROCHE-2955599

PATIENT
  Age: 27 Year
  Sex: Female

DRUGS (5)
  1. OCREVUS [Suspect]
     Active Substance: OCRELIZUMAB
     Indication: Relapsing-remitting multiple sclerosis
     Dosage: FREQUENCY: 199 DAYS
     Route: 042
     Dates: start: 20210903
  2. CORTISONE [Concomitant]
     Active Substance: CORTISONE
     Dosage: HIGH-DOSE THERAPIES
     Dates: start: 20211009, end: 20211012
  3. CORTISONE [Concomitant]
     Active Substance: CORTISONE
     Dates: start: 20211108
  4. PREGABALIN [Concomitant]
     Active Substance: PREGABALIN
  5. PANTOPRAZOLE [Concomitant]
     Active Substance: PANTOPRAZOLE
     Dosage: AS NEEDED

REACTIONS (3)
  - Swollen tongue [Recovered/Resolved]
  - Multiple sclerosis relapse [Not Recovered/Not Resolved]
  - Fatigue [Not Recovered/Not Resolved]

NARRATIVE: CASE EVENT DATE: 20210917
